FAERS Safety Report 24625799 (Version 1)
Quarter: 2024Q4

REPORT INFORMATION
  Report Type: Spontaneous
  Country: US (occurrence: US)
  Receive Date: 20241115
  Receipt Date: 20241115
  Transmission Date: 20250115
  Serious: No
  Sender: ANI
  Company Number: US-ANIPHARMA-2024-US-043611

PATIENT
  Age: 57 Year
  Sex: Male

DRUGS (7)
  1. CORTICOTROPIN [Suspect]
     Active Substance: CORTICOTROPIN
     Indication: Nephrotic syndrome
     Dosage: 80 ML EVERY TWO WEEKS
     Route: 058
     Dates: start: 20240712
  2. D2000 ULTRA STRENGTH [Concomitant]
  3. PROBIOTIC BLEND [Concomitant]
  4. LOSARTAN POTASSIUM/HYDROCHOROTHIAZIDE [Concomitant]
  5. ASPIRIN [Concomitant]
     Active Substance: ASPIRIN
  6. AMLODIPINE BESYLATE [Concomitant]
     Active Substance: AMLODIPINE BESYLATE
  7. VITAMIN E [Concomitant]
     Active Substance: .ALPHA.-TOCOPHEROL

REACTIONS (1)
  - Constipation [Recovering/Resolving]
